FAERS Safety Report 19059474 (Version 2)
Quarter: 2021Q1

REPORT INFORMATION
  Report Type: Report from Study
  Country: ES (occurrence: ES)
  Receive Date: 20210325
  Receipt Date: 20210331
  Transmission Date: 20210420
  Serious: Yes (Hospitalization)
  Sender: FDA-Public Use
  Company Number: ES-EXELIXIS-XL18421038109

PATIENT
  Age: 78 Year
  Sex: Male
  Weight: 77 kg

DRUGS (14)
  1. FOLIC ACID. [Concomitant]
     Active Substance: FOLIC ACID
  2. PARACETAMOL [Concomitant]
     Active Substance: ACETAMINOPHEN
  3. XL184 [Suspect]
     Active Substance: CABOZANTINIB
     Dosage: 20 MG, QD
     Route: 048
     Dates: start: 20210119, end: 20210226
  4. MANIDIPINE [Concomitant]
     Active Substance: MANIDIPINE
  5. XL184 [Suspect]
     Active Substance: CABOZANTINIB
     Indication: NON-SMALL CELL LUNG CANCER
     Dosage: 40 MG, QD
     Route: 048
     Dates: start: 20200424, end: 20210112
  6. SITAGLIPTINE [Concomitant]
     Active Substance: SITAGLIPTIN
  7. LOPERAMIDE [Concomitant]
     Active Substance: LOPERAMIDE
  8. ATEZOLIZUMAB. [Suspect]
     Active Substance: ATEZOLIZUMAB
     Indication: NON-SMALL CELL LUNG CANCER
     Dosage: 1200 MG, Q3WEEKS
     Route: 042
     Dates: start: 20200424
  9. SIMVASTATIN. [Concomitant]
     Active Substance: SIMVASTATIN
  10. LEVOTIROXIN [Concomitant]
     Active Substance: LEVOTHYROXINE SODIUM
  11. FUROSEMIDE. [Concomitant]
     Active Substance: FUROSEMIDE
  12. GLICAZIDE [Concomitant]
     Active Substance: GLICLAZIDE
  13. TAMSULOSIN [Concomitant]
     Active Substance: TAMSULOSIN
  14. PREDNISONE. [Concomitant]
     Active Substance: PREDNISONE

REACTIONS (2)
  - Pulmonary embolism [Unknown]
  - Colitis [Recovered/Resolved]

NARRATIVE: CASE EVENT DATE: 20210225
